FAERS Safety Report 8178090 (Version 3)
Quarter: 2012Q4

REPORT INFORMATION
  Report Type: Report from Study
  Country: HU (occurrence: HU)
  Receive Date: 20111012
  Receipt Date: 20121030
  Transmission Date: 20130627
  Serious: Yes (Other)
  Sender: FDA-Public Use
  Company Number: HU-ROCHE-1000683

PATIENT
  Age: 65 Year
  Sex: Male

DRUGS (5)
  1. PEG-INTERFERON ALFA 2A [Suspect]
     Indication: HEPATITIS C
     Dosage: dose:180 (no units)
     Route: 058
     Dates: start: 20100910, end: 20110806
  2. COPEGUS [Suspect]
     Indication: HEPATITIS C
     Dosage: 1200 (no units)
     Route: 048
     Dates: start: 20100910, end: 20110812
  3. BISOPROLOL [Concomitant]
     Indication: HYPERTENSION
     Route: 048
     Dates: start: 1998
  4. ENALAPRIL [Concomitant]
     Indication: HYPERTENSION
     Route: 048
     Dates: start: 1998
  5. HYDROCHLOROTHIAZIDE [Concomitant]
     Indication: HYPERTENSION
     Route: 048
     Dates: start: 1998

REACTIONS (1)
  - Papillary thyroid cancer [Recovered/Resolved]
